FAERS Safety Report 4922166-7 (Version None)
Quarter: 2006Q1

REPORT INFORMATION
  Report Type: 
  Country: None (occurrence: None)
  Receive Date: 20060224
  Receipt Date: 20050304
  Transmission Date: 20060701
  Serious: Yes (Hospitalization, Disabling)
  Sender: FDA-Public Use
  Company Number: US-MERCK-0503USA01067

PATIENT
  Age: 46 Year
  Sex: Female
  Weight: 91 kg

DRUGS (13)
  1. VIOXX [Suspect]
     Indication: BACK PAIN
     Route: 048
     Dates: start: 19990101
  2. VIOXX [Suspect]
     Route: 048
     Dates: end: 20010501
  3. VIOXX [Suspect]
     Route: 048
     Dates: start: 19990701
  4. VIOXX [Suspect]
     Route: 048
     Dates: start: 20000307
  5. VIOXX [Suspect]
     Indication: ARTHRALGIA
     Route: 048
     Dates: start: 19990101
  6. VIOXX [Suspect]
     Route: 048
     Dates: end: 20010501
  7. VIOXX [Suspect]
     Route: 048
     Dates: start: 19990701
  8. VIOXX [Suspect]
     Route: 048
     Dates: start: 20000307
  9. NORVASC [Concomitant]
     Route: 065
  10. LOPRESSOR [Concomitant]
     Route: 065
  11. ACTOS [Concomitant]
     Route: 065
  12. GLUCOPHAGE [Concomitant]
     Route: 065
  13. ROBAXIN [Concomitant]
     Route: 065

REACTIONS (12)
  - ARTHROPATHY [None]
  - BACK DISORDER [None]
  - CARDIAC DISORDER [None]
  - CELLULITIS [None]
  - CHEST PAIN [None]
  - CORONARY ARTERY DISEASE [None]
  - DIABETES MELLITUS [None]
  - DYSPNOEA [None]
  - HYPERTENSION [None]
  - INJURY [None]
  - MYOCARDIAL INFARCTION [None]
  - TRANSIENT ISCHAEMIC ATTACK [None]
